FAERS Safety Report 24391715 (Version 2)
Quarter: 2024Q4

REPORT INFORMATION
  Report Type: Report from Study
  Country: JP (occurrence: JP)
  Receive Date: 20241003
  Receipt Date: 20241112
  Transmission Date: 20250114
  Serious: Yes (Death)
  Sender: SHIONOGI
  Company Number: JP-shionogi-202400000232

PATIENT
  Age: 74 Year
  Sex: Male
  Weight: 53.1 kg

DRUGS (8)
  1. CEFIDEROCOL [Suspect]
     Active Substance: CEFIDEROCOL
     Indication: Pneumonia
     Route: 041
     Dates: start: 20240806, end: 20240815
  2. CLARITHROMYCIN [Concomitant]
     Active Substance: CLARITHROMYCIN
     Indication: Product used for unknown indication
     Dosage: SINCE BEFORE THE ADMINISTRATION OF FETROJA
     Route: 048
  3. RABEPRAZOLE SODIUM [Concomitant]
     Active Substance: RABEPRAZOLE SODIUM
     Indication: Product used for unknown indication
     Dosage: SINCE BEFORE THE ADMINISTRATION OF FETROJA
     Route: 048
  4. AMBROXOL HYDROCHLORIDE [Concomitant]
     Active Substance: AMBROXOL HYDROCHLORIDE
     Indication: Product used for unknown indication
     Dosage: SINCE BEFORE THE ADMINISTRATION OF FETROJA
     Route: 048
  5. GLYCOPYRRONIUM\INDACATEROL [Concomitant]
     Active Substance: GLYCOPYRRONIUM\INDACATEROL
     Indication: Product used for unknown indication
     Dosage: SINCE BEFORE THE ADMINISTRATION OF FETROJA
     Route: 061
  6. TAMSULOSIN [Concomitant]
     Active Substance: TAMSULOSIN
     Indication: Product used for unknown indication
     Dosage: SINCE BEFORE THE ADMINISTRATION OF FETROJA
     Route: 048
  7. CALONAL [Concomitant]
     Active Substance: ACETAMINOPHEN
     Indication: Pneumonia
     Dosage: SINCE BEFORE THE ADMINISTRATION OF FETROJA
     Route: 048
     Dates: end: 20240808
  8. LOXOPROFEN SODIUM [Concomitant]
     Active Substance: LOXOPROFEN SODIUM
     Indication: Pneumonia
     Dosage: SINCE BEFORE THE ADMINISTRATION OF FETROJA
     Route: 048

REACTIONS (3)
  - Pneumonia [Fatal]
  - Respiratory failure [Fatal]
  - Off label use [Unknown]

NARRATIVE: CASE EVENT DATE: 20240822
